FAERS Safety Report 6747390-2 (Version None)
Quarter: 2010Q2

REPORT INFORMATION
  Report Type: 
  Country: None (occurrence: None)
  Receive Date: 20100528
  Receipt Date: 20100519
  Transmission Date: 20101027
  Serious: Yes (Hospitalization)
  Sender: FDA-Public Use
  Company Number: B0657728A

PATIENT
  Age: 20 Year
  Sex: Female

DRUGS (2)
  1. AUGMENTIN '125' [Suspect]
     Indication: URINARY TRACT INFECTION
     Route: 048
     Dates: start: 20100303, end: 20100306
  2. CIPROXIN [Suspect]
     Indication: URINARY TRACT INFECTION
     Dates: start: 20100301, end: 20100303

REACTIONS (1)
  - RHABDOMYOLYSIS [None]
